FAERS Safety Report 6719309-1 (Version None)
Quarter: 2010Q2

REPORT INFORMATION
  Report Type: 
  Country: None (occurrence: None)
  Receive Date: 20100511
  Receipt Date: 20100428
  Transmission Date: 20101027
  Serious: Yes (Other)
  Sender: FDA-Public Use
  Company Number: PHHY2009GB51665

PATIENT

DRUGS (2)
  1. ZOMETA [Suspect]
  2. SUTENT [Concomitant]

REACTIONS (1)
  - OSTEONECROSIS OF JAW [None]
